FAERS Safety Report 9603138 (Version 2)
Quarter: 2013Q4

REPORT INFORMATION
  Report Type: Spontaneous
  Country: IT (occurrence: IT)
  Receive Date: 20131007
  Receipt Date: 20131217
  Transmission Date: 20140711
  Serious: Yes (Life-Threatening)
  Sender: FDA-Public Use
  Company Number: IT-SA-2013SA098541

PATIENT
  Age: 84 Year
  Sex: Female
  Weight: 75 kg

DRUGS (13)
  1. PLAVIX [Suspect]
     Indication: ISCHAEMIC STROKE
     Route: 048
     Dates: start: 20130831, end: 20130901
  2. FIDATO [Suspect]
     Indication: URINARY TRACT INFECTION
     Dosage: STRENGTH 1 G/10 ML
     Route: 042
     Dates: start: 20130901, end: 20130901
  3. LEVETIRACETAM [Suspect]
     Indication: EPILEPSY
     Dosage: STRENGTH 500 MG
     Route: 048
     Dates: start: 20130831, end: 20130901
  4. ASA [Concomitant]
  5. TICLOPIDINE HYDROCHLORIDE [Concomitant]
  6. CRESTOR [Concomitant]
     Dosage: STRENGTH: 10 MG
  7. NEBILOX [Concomitant]
     Dosage: STRENGTH: 5 MG
  8. TRIATEC [Concomitant]
     Dosage: STRENGTH:  5MG
  9. PANTORC [Concomitant]
     Dosage: STRENGTH: 20 MG
  10. HUMALOG [Concomitant]
     Dosage: STRENGTH: 100 U/ML
  11. LANTUS SOLOSTAR [Concomitant]
     Dosage: STRENGTH: 100 U/ML
  12. SOLOSTAR [Concomitant]
  13. CARVASIN [Concomitant]
     Dosage: 5 MG SUBLINGUAL
     Route: 060

REACTIONS (1)
  - Laryngeal oedema [Recovered/Resolved]
